FAERS Safety Report 4411909-7 (Version None)
Quarter: 2004Q3

REPORT INFORMATION
  Report Type: 
  Country: None (occurrence: None)
  Receive Date: 20040730
  Receipt Date: 20040121
  Transmission Date: 20050211
  Serious: No
  Sender: FDA-Public Use
  Company Number: US-GLAXOSMITHKLINE-A0494486A

PATIENT
  Age: 71 Year
  Sex: Female

DRUGS (8)
  1. ZANTAC [Suspect]
     Indication: ILL-DEFINED DISORDER
     Route: 048
     Dates: start: 20031201
  2. SYNTHROID [Concomitant]
  3. COZAAR [Concomitant]
  4. NEXIUM [Concomitant]
  5. MULTI-VITAMIN [Concomitant]
  6. VITAMIN E [Concomitant]
  7. CALCIUM [Concomitant]
  8. NEURONTIN [Concomitant]

REACTIONS (1)
  - DRY MOUTH [None]
